FAERS Safety Report 4282110-5 (Version None)
Quarter: 2004Q1

REPORT INFORMATION
  Report Type: 
  Country: None (occurrence: None)
  Receive Date: 20040130
  Receipt Date: 20030718
  Transmission Date: 20041129
  Serious: No
  Sender: FDA-Public Use
  Company Number: US-BRISTOL-MYERS SQUIBB COMPANY-12330205

PATIENT
  Age: 8 Year
  Weight: 37 kg

DRUGS (2)
  1. TRAZODONE HCL [Suspect]
     Indication: INSOMNIA
     Dosage: TAKES EACH NIGHT
     Route: 048
  2. CONCERTA [Concomitant]

REACTIONS (1)
  - BLOOD GLUCOSE INCREASED [None]
